FAERS Safety Report 5872193-0 (Version None)
Quarter: 2008Q3

REPORT INFORMATION
  Report Type: 
  Country: None (occurrence: None)
  Receive Date: 20080905
  Receipt Date: 20080904
  Transmission Date: 20090109
  Serious: Yes (Hospitalization)
  Sender: FDA-Public Use
  Company Number: GB-BOEHRINGER INGELHEIM GMBH, GERMANY-2008-UK-01503UK

PATIENT
  Sex: Male

DRUGS (5)
  1. VIRAMUNE [Suspect]
     Indication: HIV TEST POSITIVE
  2. VIRAMUNE [Suspect]
     Dosage: 200MG TWICE DAILY
  3. TRUVADA [Suspect]
     Indication: HIV TEST POSITIVE
     Dosage: 1 TABLET ONCE DAILY
  4. ATONAVIR [Concomitant]
  5. TENOFOVIR [Concomitant]

REACTIONS (10)
  - BLOOD ALBUMIN DECREASED [None]
  - ENTEROCOCCAL INFECTION [None]
  - EXFOLIATIVE RASH [None]
  - HEPATIC ENZYME INCREASED [None]
  - LYMPHADENOPATHY [None]
  - MALAISE [None]
  - OEDEMA [None]
  - PYREXIA [None]
  - RASH MACULO-PAPULAR [None]
  - STAPHYLOCOCCAL BACTERAEMIA [None]
